FAERS Safety Report 4805201-6 (Version None)
Quarter: 2005Q4

REPORT INFORMATION
  Report Type: 
  Country: None (occurrence: None)
  Receive Date: 20051017
  Receipt Date: 20051006
  Transmission Date: 20060501
  Serious: Yes (Other)
  Sender: FDA-Public Use
  Company Number: 2005138953

PATIENT
  Age: 63 Year
  Sex: Male
  Weight: 99.7913 kg

DRUGS (9)
  1. TIKOSYN [Suspect]
     Indication: ATRIAL FIBRILLATION
  2. NEXIUM [Concomitant]
  3. NEURONTIN [Concomitant]
  4. COUMADIN [Concomitant]
  5. LIPITOR [Concomitant]
  6. PROZAC [Concomitant]
  7. PARAFON FORTE (CHLORZOXAZONE, PARACETAMOL) [Concomitant]
  8. CELEBREX [Concomitant]
  9. TRAMADOL HCL [Concomitant]

REACTIONS (2)
  - BLADDER STENOSIS [None]
  - PROSTATIC OPERATION [None]
